FAERS Safety Report 9852061 (Version 6)
Quarter: 2015Q4

REPORT INFORMATION
  Report Type: Spontaneous
  Country: US (occurrence: None)
  Receive Date: 20140127
  Receipt Date: 20151005
  Transmission Date: 20160305
  Serious: Yes (Other)
  Sender: FDA-Public Use
  Company Number: ADR-2014-00097

PATIENT
  Age: 66 Year
  Sex: Female

DRUGS (2)
  1. LIORESAL [Suspect]
     Active Substance: BACLOFEN
     Indication: PAIN
  2. DILAUDID [Suspect]
     Active Substance: HYDROMORPHONE HYDROCHLORIDE
     Indication: PAIN

REACTIONS (46)
  - Atrial fibrillation [None]
  - Lung carcinoma cell type unspecified recurrent [None]
  - Visual acuity reduced [None]
  - Dyskinesia [None]
  - Weight decreased [None]
  - Gastrointestinal disorder [None]
  - Pain [None]
  - Heart rate decreased [None]
  - Vomiting [None]
  - Mass [None]
  - Localised intraabdominal fluid collection [None]
  - Cardiac disorder [None]
  - Asthenia [None]
  - Spinal claudication [None]
  - Insomnia [None]
  - No therapeutic response [None]
  - Performance status decreased [None]
  - Intervertebral disc degeneration [None]
  - Facet joint syndrome [None]
  - Gait disturbance [None]
  - Abdominal pain [None]
  - Diverticulum [None]
  - Medical device site pain [None]
  - Neck pain [None]
  - Tremor [None]
  - Motion sickness [None]
  - Burning sensation [None]
  - Limb discomfort [None]
  - Weight increased [None]
  - Pain in extremity [None]
  - Fractured coccyx [None]
  - Lung disorder [None]
  - Headache [None]
  - Groin pain [None]
  - Nausea [None]
  - Intervertebral disc disorder [None]
  - Back pain [None]
  - Overdose [None]
  - Sleep disorder [None]
  - Squamous cell carcinoma of lung [None]
  - Arthralgia [None]
  - Balance disorder [None]
  - Erythema [None]
  - Medical device discomfort [None]
  - Spinal column stenosis [None]
  - Muscular weakness [None]
